FAERS Safety Report 7083759-7 (Version None)
Quarter: 2010Q4

REPORT INFORMATION
  Report Type: 
  Country: None (occurrence: None)
  Receive Date: 20101104
  Receipt Date: 20101027
  Transmission Date: 20110411
  Serious: Yes (Hospitalization)
  Sender: FDA-Public Use
  Company Number: JP-MERCK-1010USA03576

PATIENT
  Age: 60 Year
  Sex: Male

DRUGS (5)
  1. JANUVIA [Suspect]
     Indication: TYPE 2 DIABETES MELLITUS
     Route: 048
     Dates: start: 20100513, end: 20101027
  2. LIVALO [Suspect]
     Route: 048
  3. CASODEX [Suspect]
     Route: 048
  4. TOFRANIL [Suspect]
     Route: 048
  5. SPIROPENT [Suspect]
     Route: 048

REACTIONS (2)
  - ACTIVATED PARTIAL THROMBOPLASTIN TIME PROLONGED [None]
  - PULMONARY HAEMORRHAGE [None]
